FAERS Safety Report 5798848-4 (Version None)
Quarter: 2008Q2

REPORT INFORMATION
  Report Type: 
  Country: None (occurrence: None)
  Receive Date: 20080630
  Receipt Date: 20080618
  Transmission Date: 20081010
  Serious: Yes (Hospitalization)
  Sender: FDA-Public Use
  Company Number: 6043747

PATIENT
  Age: 74 Year
  Sex: Female

DRUGS (7)
  1. EMCORETIC (HYDROCHLOROTHIAZIDE, BISOPROLOL FUMARATE) [Suspect]
     Indication: HYPERTENSION
     Dosage: 5 MG (5 MG, 1 IN 1 D), ORAL
     Route: 048
     Dates: start: 20050101, end: 20071208
  2. TIMOLOL MALEATE [Suspect]
     Indication: GLAUCOMA
     Dosage: 1 GTT 91 GTT, 1 IN 1 D); OPHTHALMIC
     Route: 047
     Dates: start: 20070606, end: 20071208
  3. GLYBURIDE [Concomitant]
  4. FLUMIL (ACETYLCYSTEINE) [Concomitant]
  5. PRITORPLUS (HYDROCHLOROTHIAZIDE, TELISARTAN) [Concomitant]
  6. VENTOLIN [Concomitant]
  7. SPIRIVA [Concomitant]

REACTIONS (2)
  - ATRIOVENTRICULAR BLOCK [None]
  - DRUG INTERACTION [None]
